FAERS Safety Report 9349162 (Version 2)
Quarter: 2013Q2

REPORT INFORMATION
  Report Type: Spontaneous
  Country: US (occurrence: US)
  Receive Date: 20130614
  Receipt Date: 20130619
  Transmission Date: 20140414
  Serious: Yes (Hospitalization)
  Sender: FDA-Public Use
  Company Number: US-BAYER-2013-071828

PATIENT
  Age: 36 Year
  Sex: Female
  Weight: 102 kg

DRUGS (21)
  1. YAZ [Suspect]
     Dosage: UNK
     Dates: start: 201006
  2. YASMIN [Suspect]
     Dosage: UNK
     Dates: start: 201006
  3. MACRODANTIN [Concomitant]
     Dosage: UNK
     Dates: start: 20120516
  4. PRIMAXIN [Concomitant]
     Dosage: UNK
     Route: 042
     Dates: start: 20120524
  5. CIPRO [Concomitant]
     Dosage: UNK
     Dates: start: 20120524
  6. LYRICA [Concomitant]
     Dosage: 150 MG, BID
     Dates: start: 20120524
  7. TRAZODONE [Concomitant]
     Dosage: 100 TO 300 MG [AT] HS PRN
     Dates: start: 20120524
  8. TRAZODONE [Concomitant]
     Dosage: UNK
     Dates: start: 20120531
  9. AMBIEN [Concomitant]
     Dosage: 5 MG, UNK
     Dates: start: 20120524
  10. ZOFRAN [Concomitant]
     Dosage: UNK
     Dates: start: 20120524
  11. SYNTHROID [Concomitant]
     Dosage: 100 ?G, QD
     Dates: start: 20120524
  12. SINGULAIR [Concomitant]
     Dosage: 10 MG, QD
  13. DEXILANT [Concomitant]
     Dosage: 60 MG, QD
  14. WELCHOL [Concomitant]
     Dosage: UNK
     Dates: start: 20120525
  15. INVANZ [Concomitant]
     Dosage: 1 UNK, UNK
     Dates: start: 20120525, end: 20120531
  16. ZANAFLEX [Concomitant]
     Dosage: 4 MG, PRN
     Dates: start: 20120531
  17. TRAMADOL [Concomitant]
     Dosage: UNK
     Dates: start: 20120531
  18. ULTRAM [Concomitant]
     Dosage: UNK
     Dates: start: 20120531
  19. PHENERGAN [Concomitant]
     Dosage: UNK
     Dates: start: 20120531
  20. TIZANIDINE [Concomitant]
     Dosage: UNK
     Dates: start: 20120531
  21. VITAMIN D [Concomitant]
     Dosage: UNK
     Dates: start: 20120531

REACTIONS (5)
  - Pulmonary embolism [None]
  - Pain [None]
  - Fear of disease [None]
  - Injury [None]
  - Pain [None]
